FAERS Safety Report 4979454-8 (Version None)
Quarter: 2006Q2

REPORT INFORMATION
  Report Type: 
  Country: None (occurrence: None)
  Receive Date: 20060421
  Receipt Date: 20060417
  Transmission Date: 20061013
  Serious: Yes (Death)
  Sender: FDA-Public Use
  Company Number: BR-JNJFOC-20060402919

PATIENT
  Age: 21 Day
  Sex: Male

DRUGS (2)
  1. DAKTARIN [Suspect]
     Indication: ORAL CANDIDIASIS
     Route: 048
  2. BICARBONATE WATER SOLUTION [Concomitant]
     Route: 048

REACTIONS (3)
  - DEHYDRATION [None]
  - RESPIRATORY FAILURE [None]
  - SEPSIS [None]
